FAERS Safety Report 7971683-4 (Version None)
Quarter: 2011Q4

REPORT INFORMATION
  Report Type: 
  Country: None (occurrence: None)
  Receive Date: 20111212
  Receipt Date: 20111115
  Transmission Date: 20120403
  Serious: Yes (Hospitalization)
  Sender: FDA-Public Use
  Company Number: US-ASTRAZENECA-2010SE33874

PATIENT
  Age: 71 Year
  Sex: Female
  Weight: 46.3 kg

DRUGS (9)
  1. PARNATE [Concomitant]
  2. PROTONIX [Concomitant]
  3. PREVACID [Concomitant]
  4. SIMVASTATIN [Concomitant]
  5. DIAZEPAM [Concomitant]
  6. VICODIN [Concomitant]
     Indication: PAIN
  7. NEXIUM [Suspect]
     Indication: GASTROOESOPHAGEAL REFLUX DISEASE
     Route: 048
     Dates: start: 20091003
  8. SEROQUEL XR [Suspect]
     Indication: DEPRESSION
     Route: 048
     Dates: start: 20101003
  9. KEPPRA [Concomitant]

REACTIONS (7)
  - ARTHRALGIA [None]
  - CONVULSION [None]
  - ABDOMINAL PAIN UPPER [None]
  - DRUG DOSE OMISSION [None]
  - HIP FRACTURE [None]
  - FALL [None]
  - HALLUCINATION, AUDITORY [None]
